FAERS Safety Report 20132651 (Version 2)
Quarter: 2022Q1

REPORT INFORMATION
  Report Type: Spontaneous
  Country: US (occurrence: US)
  Receive Date: 20211130
  Receipt Date: 20220202
  Transmission Date: 20220424
  Serious: Yes (Death, Other)
  Sender: FDA-Public Use
  Company Number: US-JNJFOC-20211151378

PATIENT
  Sex: Male

DRUGS (4)
  1. BALVERSA [Suspect]
     Active Substance: ERDAFITINIB
     Indication: Product used for unknown indication
     Dosage: TWO 4 MG TABLETS ONCE DAILY
     Route: 048
     Dates: start: 20210303
  2. BALVERSA [Suspect]
     Active Substance: ERDAFITINIB
     Route: 048
     Dates: end: 20211102
  3. TAMSULOSIN [Concomitant]
     Active Substance: TAMSULOSIN
     Indication: Urine flow decreased
     Route: 065
     Dates: start: 2018
  4. FINASTERIDE [Concomitant]
     Active Substance: FINASTERIDE
     Indication: Benign prostatic hyperplasia
     Route: 065
     Dates: start: 2021

REACTIONS (3)
  - Death [Fatal]
  - Neoplasm progression [Not Recovered/Not Resolved]
  - Taste disorder [Not Recovered/Not Resolved]
